FAERS Safety Report 5051645-X (Version None)
Quarter: 2006Q3

REPORT INFORMATION
  Report Type: 
  Country: None (occurrence: None)
  Receive Date: 20060711
  Receipt Date: 20060620
  Transmission Date: 20061208
  Serious: Yes (Death, Other)
  Sender: FDA-Public Use
  Company Number: US200605000686

PATIENT
  Age: 3 Year
  Sex: Male

DRUGS (1)
  1. HUMATROPE [Suspect]
     Indication: PROGERIA
     Dosage: 0.2 MG
     Dates: start: 20040601, end: 20060301

REACTIONS (6)
  - FEEDING TUBE COMPLICATION [None]
  - GASTROINTESTINAL HAEMORRHAGE [None]
  - GASTROINTESTINAL NECROSIS [None]
  - GASTROINTESTINAL TUBE INSERTION [None]
  - MULTI-ORGAN FAILURE [None]
  - SEPSIS [None]
